FAERS Safety Report 12402920 (Version 2)
Quarter: 2016Q3

REPORT INFORMATION
  Report Type: Spontaneous
  Country: TR (occurrence: TR)
  Receive Date: 20160525
  Receipt Date: 20160927
  Transmission Date: 20161109
  Serious: Yes (Congenital Anomaly, Other)
  Sender: FDA-Public Use
  Company Number: PHHY2016TR069538

PATIENT
  Age: 39 Week
  Sex: Male
  Weight: 4 kg

DRUGS (5)
  1. TEGRETOL [Suspect]
     Active Substance: CARBAMAZEPINE
     Indication: FOETAL EXPOSURE DURING PREGNANCY
     Dosage: 2 X 400MG (MATERNAL DOSE)
     Route: 064
  2. VALPROATE SODIUM. [Suspect]
     Active Substance: VALPROATE SODIUM
     Indication: FOETAL EXPOSURE DURING PREGNANCY
     Dosage: UNK
     Route: 064
  3. CARBAMAZEPINE. [Suspect]
     Active Substance: CARBAMAZEPINE
     Indication: FOETAL EXPOSURE DURING PREGNANCY
     Dosage: UNK
     Route: 064
  4. CONVULEX//VALPROIC ACID [Suspect]
     Active Substance: VALPROIC ACID
     Indication: FOETAL EXPOSURE DURING PREGNANCY
     Dosage: 500 MG IN THE MORNINGS AND 750 MG IN THE EVENINGS THROUGHOUT HER GESTATION (MATERNAL DOSE)
     Route: 064
  5. MAGNESIUM [Concomitant]
     Active Substance: MAGNESIUM
     Indication: BLOOD MAGNESIUM DECREASED
     Dosage: 50 MG/KG, UNK
     Route: 065

REACTIONS (6)
  - Hypomagnesaemia [Unknown]
  - Withdrawal syndrome [Unknown]
  - Atrial septal defect [Unknown]
  - Feeding disorder [Unknown]
  - Hyponatraemia [Unknown]
  - Foetal exposure during pregnancy [Unknown]
